FAERS Safety Report 6860056-3 (Version None)
Quarter: 2010Q3

REPORT INFORMATION
  Report Type: 
  Country: None (occurrence: None)
  Receive Date: 20100720
  Receipt Date: 20100715
  Transmission Date: 20110219
  Serious: Yes (Other)
  Sender: FDA-Public Use
  Company Number: US-SANOFI-AVENTIS-2010SA041923

PATIENT
  Age: 50 Year
  Sex: Male
  Weight: 63.63 kg

DRUGS (5)
  1. PLAVIX [Suspect]
     Route: 048
     Dates: start: 20100401
  2. PLAVIX [Suspect]
     Indication: CAROTID ARTERY OCCLUSION
     Route: 048
     Dates: start: 20100401
  3. ASPIRIN [Suspect]
     Route: 048
     Dates: start: 20100401
  4. ASPIRIN [Suspect]
     Indication: CAROTID ARTERY OCCLUSION
     Route: 048
     Dates: start: 20100401
  5. LISINOPRIL [Concomitant]

REACTIONS (7)
  - ASTHENIA [None]
  - BLOOD IRON DECREASED [None]
  - CHRONIC OBSTRUCTIVE PULMONARY DISEASE [None]
  - DYSPNOEA [None]
  - HAEMOGLOBIN DECREASED [None]
  - HYPERHIDROSIS [None]
  - PLATELET COUNT INCREASED [None]
